FAERS Safety Report 8401228-6 (Version None)
Quarter: 2012Q2

REPORT INFORMATION
  Report Type: 
  Country: None (occurrence: None)
  Receive Date: 20120601
  Receipt Date: 20120528
  Transmission Date: 20120825
  Serious: Yes (Death, Other)
  Sender: FDA-Public Use
  Company Number: PHHY2012MX045929

PATIENT
  Sex: Female

DRUGS (2)
  1. CHEMOTHERAPEUTICS [Suspect]
  2. GLEEVEC [Suspect]
     Indication: ACUTE LYMPHOCYTIC LEUKAEMIA
     Dosage: 600 MG, UNK
     Dates: start: 20101112

REACTIONS (2)
  - DEATH [None]
  - COMA [None]
